FAERS Safety Report 21543281 (Version 6)
Quarter: 2024Q4

REPORT INFORMATION
  Report Type: Spontaneous
  Country: US (occurrence: US)
  Receive Date: 20221102
  Receipt Date: 20241126
  Transmission Date: 20250115
  Serious: Yes (Hospitalization, Other)
  Sender: SANOFI AVENTIS
  Company Number: US-SA-SAC20221101001282

PATIENT
  Age: 56 Year
  Sex: Female

DRUGS (4)
  1. DUPIXENT [Suspect]
     Active Substance: DUPILUMAB
     Indication: Asthma
     Dosage: 300 MG, QOW
     Route: 058
  2. PREDNISONE [Suspect]
     Active Substance: PREDNISONE
     Indication: Asthma
     Dosage: UNK
  3. TYMLOS [Concomitant]
     Active Substance: ABALOPARATIDE
     Indication: Osteoporosis
  4. TYMLOS [Concomitant]
     Active Substance: ABALOPARATIDE
     Indication: Multiple fractures

REACTIONS (6)
  - Anaphylactic reaction [Unknown]
  - Hypersensitivity [Unknown]
  - Multiple fractures [Unknown]
  - COVID-19 [Unknown]
  - Illness [Unknown]
  - Osteoporosis [Unknown]

NARRATIVE: CASE EVENT DATE: 20221123
